FAERS Safety Report 5635875-1 (Version None)
Quarter: 2008Q1

REPORT INFORMATION
  Report Type: 
  Country: None (occurrence: None)
  Receive Date: 20080221
  Receipt Date: 20080212
  Transmission Date: 20080703
  Serious: Yes (Other)
  Sender: FDA-Public Use
  Company Number: DMSA-UK-0801S-0001

PATIENT
  Age: 3 Year
  Sex: Male
  Weight: 15.6 kg

DRUGS (3)
  1. TECHNETIUM TC99M DMSA [Suspect]
     Indication: URINARY TRACT INFECTION
     Dosage: 24.78 MBQ, SINGLE DOSE, I.V.
     Route: 042
     Dates: start: 20071102, end: 20071102
  2. TECHNETIUM (TC99M) GENERATOR (MANF. UNKNOWN) (SODIUM PERTECHNETATE TC9 [Concomitant]
  3. POLYETHYLENE GLYCOL (MOVICOL) [Concomitant]

REACTIONS (3)
  - ENURESIS [None]
  - FATIGUE [None]
  - SOMNOLENCE [None]
